FAERS Safety Report 23408332 (Version 1)
Quarter: 2024Q1

REPORT INFORMATION
  Report Type: Spontaneous
  Country: GR (occurrence: GR)
  Receive Date: 20240117
  Receipt Date: 20240117
  Transmission Date: 20240410
  Serious: Yes (Other)
  Sender: FDA-Public Use
  Company Number: GR-EPICPHARMA-GR-2024EPCLIT00043

PATIENT
  Sex: Female

DRUGS (6)
  1. GENTAMICIN SULFATE [Suspect]
     Active Substance: GENTAMICIN SULFATE
     Indication: Antibiotic therapy
     Dosage: PER 48 HOURS
     Route: 042
  2. AMPICILLIN [Suspect]
     Active Substance: AMPICILLIN
     Indication: Antibiotic therapy
     Dosage: PER DAY
     Route: 065
  3. CIPROFLOXACIN [Suspect]
     Active Substance: CIPROFLOXACIN
     Indication: Antibiotic therapy
     Dosage: PER 12 HOURS
     Route: 065
  4. AMIKACIN [Suspect]
     Active Substance: AMIKACIN
     Indication: Antibiotic therapy
     Dosage: PER 36 HOURS
     Route: 065
  5. TEICOPLANIN [Suspect]
     Active Substance: TEICOPLANIN
     Indication: Antibiotic therapy
     Dosage: PER DAY
     Route: 042
  6. PORACTANT ALFA [Concomitant]
     Active Substance: PORACTANT ALFA
     Indication: Product used for unknown indication
     Route: 065

REACTIONS (1)
  - Fungaemia [Recovered/Resolved]
